FAERS Safety Report 7597567-1 (Version None)
Quarter: 2011Q3

REPORT INFORMATION
  Report Type: 
  Country: None (occurrence: None)
  Receive Date: 20110708
  Receipt Date: 20110628
  Transmission Date: 20111222
  Serious: Yes (Hospitalization, Disabling)
  Sender: FDA-Public Use
  Company Number: JP-ROCHE-765399

PATIENT
  Sex: Female

DRUGS (3)
  1. RHEUMATREX [Concomitant]
     Dosage: DOSAGE IS UNCERTAIN.
     Route: 048
  2. MOBIC [Concomitant]
     Dosage: DOSAGE IS UNCERTAIN.
     Route: 048
  3. ACTEMRA [Suspect]
     Indication: RHEUMATOID ARTHRITIS
     Route: 041
     Dates: start: 20081201, end: 20110128

REACTIONS (7)
  - ANEURYSM [None]
  - SEPSIS [None]
  - SUBARACHNOID HAEMORRHAGE [None]
  - ENDOCARDITIS STAPHYLOCOCCAL [None]
  - LEUKOENCEPHALOPATHY [None]
  - DISSEMINATED INTRAVASCULAR COAGULATION [None]
  - CEREBRAL HAEMORRHAGE [None]
